FAERS Safety Report 5897791-X (Version None)
Quarter: 2008Q3

REPORT INFORMATION
  Report Type: 
  Country: None (occurrence: None)
  Receive Date: 20080925
  Receipt Date: 20080919
  Transmission Date: 20090109
  Serious: Yes (Hospitalization, Other)
  Sender: FDA-Public Use
  Company Number: PHHO2008US06110

PATIENT
  Sex: Male
  Weight: 123.36 kg

DRUGS (6)
  1. TASIGNA [Suspect]
     Indication: CHRONIC MYELOID LEUKAEMIA
     Dosage: 300 MG, BID
     Route: 048
     Dates: start: 20080409, end: 20080506
  2. SYNTHROID [Concomitant]
  3. MILK OF MAGNESIA [Concomitant]
  4. LACTULOSE [Concomitant]
  5. MICRO-K [Concomitant]
  6. ALLOPURINOL [Concomitant]

REACTIONS (9)
  - CHEST PAIN [None]
  - CONCOMITANT DISEASE PROGRESSION [None]
  - CORONARY ARTERY DISEASE [None]
  - CORONARY ARTERY STENOSIS [None]
  - DYSPNOEA [None]
  - HYPERHIDROSIS [None]
  - HYPERTENSION [None]
  - NAUSEA [None]
  - SINUS TACHYCARDIA [None]
